FAERS Safety Report 18799178 (Version 1)
Quarter: 2021Q1

REPORT INFORMATION
  Report Type: Spontaneous
  Country: US (occurrence: US)
  Receive Date: 20210128
  Receipt Date: 20210128
  Transmission Date: 20210419
  Serious: No
  Sender: FDA-Public Use
  Company Number: US-AMGEN-USASP2021011532

PATIENT
  Age: 84 Year
  Sex: Male

DRUGS (3)
  1. GEMZAR [Concomitant]
     Active Substance: GEMCITABINE HYDROCHLORIDE
     Dosage: UNK UNK, Q3WK
     Dates: start: 202011
  2. ABRAXANE [Concomitant]
     Active Substance: PACLITAXEL
     Dosage: UNK UNK, Q3WK
     Dates: start: 202011
  3. NEULASTA [Suspect]
     Active Substance: PEGFILGRASTIM
     Indication: NEUTROPENIA
     Dosage: UNK UNK, AFTER CHEMO
     Route: 065
     Dates: start: 202101

REACTIONS (4)
  - Joint swelling [Unknown]
  - Peripheral swelling [Unknown]
  - Incorrect disposal of product [Unknown]
  - Rash [Unknown]

NARRATIVE: CASE EVENT DATE: 202101
